FAERS Safety Report 5316076-3 (Version None)
Quarter: 2007Q2

REPORT INFORMATION
  Report Type: 
  Country: None (occurrence: None)
  Receive Date: 20070427
  Receipt Date: 20070419
  Transmission Date: 20071010
  Serious: Yes (Life-Threatening, Hospitalization)
  Sender: FDA-Public Use
  Company Number: 232516K07USA

PATIENT
  Age: 34 Year
  Sex: Female

DRUGS (2)
  1. REBIF [Suspect]
     Indication: MULTIPLE SCLEROSIS
     Dosage: 44 MCG, 3 IN 7 DAYS, SUBCUTANEOUS
     Route: 058
     Dates: start: 20060925, end: 20070202
  2. MOTRIN [Concomitant]

REACTIONS (6)
  - APHASIA [None]
  - ENCEPHALITIS VIRAL [None]
  - HEMIPARESIS [None]
  - HERPES SIMPLEX [None]
  - MEMORY IMPAIRMENT [None]
  - MENTAL STATUS CHANGES [None]
